FAERS Safety Report 7611452-8 (Version None)
Quarter: 2011Q3

REPORT INFORMATION
  Report Type: 
  Country: None (occurrence: None)
  Receive Date: 20110715
  Receipt Date: 20110712
  Transmission Date: 20111222
  Serious: Yes (Hospitalization)
  Sender: FDA-Public Use
  Company Number: IT-ROCHE-789123

PATIENT
  Sex: Male
  Weight: 90 kg

DRUGS (4)
  1. BEVACIZUMAB [Suspect]
     Indication: GLIOBLASTOMA
     Route: 042
     Dates: start: 20110330
  2. LEVETIRACETAM [Concomitant]
     Indication: GLIOBLASTOMA
     Route: 048
     Dates: start: 20100615
  3. FUROSEMIDE [Concomitant]
     Indication: GLIOBLASTOMA
     Dosage: FREQUENCY: EVERY OTHER DAY
     Route: 048
     Dates: start: 20110622
  4. IRINOTECAN HCL [Suspect]
     Indication: GLIOBLASTOMA
     Route: 042
     Dates: start: 20110330, end: 20110624

REACTIONS (1)
  - PYREXIA [None]
